FAERS Safety Report 26025652 (Version 1)
Quarter: 2025Q4

REPORT INFORMATION
  Report Type: Report from Study
  Country: CO (occurrence: CO)
  Receive Date: 20251111
  Receipt Date: 20251111
  Transmission Date: 20260118
  Serious: No
  Sender: BIOGEN
  Company Number: CO-BIOGEN-2022BI01122399

PATIENT
  Age: 52 Year
  Sex: Female
  Weight: 80 kg

DRUGS (9)
  1. TYSABRI [Suspect]
     Active Substance: NATALIZUMAB
     Indication: Multiple sclerosis
     Dates: start: 202301
  2. TYSABRI [Suspect]
     Active Substance: NATALIZUMAB
     Dates: start: 20220411
  3. TYSABRI [Suspect]
     Active Substance: NATALIZUMAB
     Dates: start: 20190617, end: 20220411
  4. TYSABRI [Suspect]
     Active Substance: NATALIZUMAB
     Dates: start: 20180801, end: 202301
  5. JANUMET [Concomitant]
     Active Substance: METFORMIN HYDROCHLORIDE\SITAGLIPTIN PHOSPHATE
     Indication: Glucose tolerance impaired
     Dosage: DOSAGE TEXT:50/800 MG
     Dates: start: 2018
  6. EMPAGLIFLOZIN [Concomitant]
     Active Substance: EMPAGLIFLOZIN
     Indication: Glucose tolerance impaired
  7. VITAMIN D3 [Concomitant]
     Active Substance: CHOLECALCIFEROL
     Indication: Product used for unknown indication
  8. ATORVASTATIN [Concomitant]
     Active Substance: ATORVASTATIN
     Indication: Product used for unknown indication
  9. JARDIANCE [Concomitant]
     Active Substance: EMPAGLIFLOZIN
     Indication: Glucose tolerance impaired
     Dates: start: 202307

REACTIONS (9)
  - Glucose tolerance impaired [Unknown]
  - Prescribed underdose [Not Recovered/Not Resolved]
  - Nicotinic acid deficiency [Not Recovered/Not Resolved]
  - Headache [Not Recovered/Not Resolved]
  - Tremor [Recovered/Resolved]
  - Pyrexia [Recovered/Resolved]
  - Fatigue [Recovered/Resolved]
  - Rash [Not Recovered/Not Resolved]
  - Vitamin D decreased [Not Recovered/Not Resolved]

NARRATIVE: CASE EVENT DATE: 20180101
